FAERS Safety Report 23229280 (Version 1)
Quarter: 2023Q4

REPORT INFORMATION
  Report Type: Spontaneous
  Country: DE (occurrence: DE)
  Receive Date: 20231127
  Receipt Date: 20231127
  Transmission Date: 20240110
  Serious: Yes (Other)
  Sender: FDA-Public Use
  Company Number: DE-CHEPLA-2023014857

PATIENT
  Sex: Female

DRUGS (6)
  1. CLONAZEPAM [Suspect]
     Active Substance: CLONAZEPAM
  2. BISOPROLOL [Suspect]
     Active Substance: BISOPROLOL\BISOPROLOL FUMARATE
  3. RAMIPRIL [Concomitant]
     Active Substance: RAMIPRIL
  4. LYRICA [Concomitant]
     Active Substance: PREGABALIN
  5. IMOVANE [Concomitant]
     Active Substance: ZOPICLONE
  6. REMERON [Concomitant]
     Active Substance: MIRTAZAPINE

REACTIONS (1)
  - Hepatic cirrhosis [Unknown]
